FAERS Safety Report 23097910 (Version 2)
Quarter: 2024Q2

REPORT INFORMATION
  Report Type: Report from Study
  Country: DE (occurrence: DE)
  Receive Date: 20231023
  Receipt Date: 20240415
  Transmission Date: 20240716
  Serious: Yes (Hospitalization)
  Sender: FDA-Public Use
  Company Number: DE-ABBVIE-5459031

PATIENT
  Age: 74 Year
  Sex: Female

DRUGS (5)
  1. RINVOQ [Suspect]
     Active Substance: UPADACITINIB
     Indication: Rheumatoid arthritis
     Route: 048
     Dates: start: 202104
  2. METHOTREXATE SODIUM [Concomitant]
     Active Substance: METHOTREXATE SODIUM
     Indication: Product used for unknown indication
     Dosage: START DATE TEXT: BEFORE 16MAY2018?STOP DATE TEXT: BETWEEN 26JUL2018 AND 1NOV2018
     Dates: start: 2018, end: 2018
  3. METHOTREXATE SODIUM [Concomitant]
     Active Substance: METHOTREXATE SODIUM
     Indication: Product used for unknown indication
     Dosage: START DATE TEXT: BETWEEN 26JUL2018 AND 1NOV2018?STOP DATE TEXT: BETWEEN 1NOV2018 AND 9APR2019
     Dates: start: 2018
  4. METHOTREXATE SODIUM [Concomitant]
     Active Substance: METHOTREXATE SODIUM
     Indication: Product used for unknown indication
     Dosage: START DATE TEXT: BETWEEN 1NOV2018 AND 9APR2019?STOP DATE TEXT: BETWEEN 23OCT2019 AND 2APR2020
  5. METHOTREXATE SODIUM [Concomitant]
     Active Substance: METHOTREXATE SODIUM
     Indication: Product used for unknown indication
     Dosage: START DATE TEXT: BETWEEN 1OCT2020 AND 13APR2021?STOP DATE TEXT: BETWEEN20MAY2022 AND 23JAN2023

REACTIONS (2)
  - Spinal stenosis [Not Recovered/Not Resolved]
  - Sciatica [Not Recovered/Not Resolved]

NARRATIVE: CASE EVENT DATE: 20221213
